FAERS Safety Report 4658548-0 (Version None)
Quarter: 2005Q2

REPORT INFORMATION
  Report Type: 
  Country: None (occurrence: None)
  Receive Date: 20050509
  Receipt Date: 20050421
  Transmission Date: 20051028
  Serious: Yes (Other)
  Sender: FDA-Public Use
  Company Number: DSA_26330_2005

PATIENT
  Sex: Male

DRUGS (2)
  1. VASOTEC [Suspect]
     Dosage: VAR PO
     Route: 048
  2. VASOTEC [Suspect]
     Dosage: 10 MG Q DAY PO
     Route: 048

REACTIONS (2)
  - BLOOD PRESSURE INADEQUATELY CONTROLLED [None]
  - INCORRECT DRUG DOSAGE FORM ADMINISTERED [None]
